FAERS Safety Report 4867104-0 (Version None)
Quarter: 2005Q4

REPORT INFORMATION
  Report Type: 
  Country: None (occurrence: None)
  Receive Date: 20051222
  Receipt Date: 20051202
  Transmission Date: 20060501
  Serious: Yes (Other)
  Sender: FDA-Public Use
  Company Number: US200512000646

PATIENT
  Age: 77 Year
  Sex: Female

DRUGS (1)
  1. FORTEO [Suspect]
     Indication: OSTEOPOROSIS

REACTIONS (3)
  - ACCIDENTAL OVERDOSE [None]
  - ACTIVITIES OF DAILY LIVING IMPAIRED [None]
  - MEDICATION ERROR [None]
